FAERS Safety Report 5356891-3 (Version None)
Quarter: 2007Q2

REPORT INFORMATION
  Report Type: 
  Country: None (occurrence: None)
  Receive Date: 20070614
  Receipt Date: 20070417
  Transmission Date: 20071010
  Serious: Yes (Other)
  Sender: FDA-Public Use
  Company Number: US-PURDUE-USA_2007_0027686

PATIENT
  Age: 48 Year
  Sex: Female

DRUGS (7)
  1. OXYCONTIN [Suspect]
     Indication: PAIN
     Dosage: UNK, SEE TEXT
     Dates: start: 19990727
  2. CELEBREX [Concomitant]
     Dosage: 200 MG, BID
  3. ULTRAM [Concomitant]
     Dosage: 50 MG, TID
  4. BACLOFEN [Concomitant]
     Dosage: 20 MG, BID
  5. ORAMORPH SR [Concomitant]
     Dosage: 30 MG, BID
  6. NEURONTIN [Concomitant]
     Dosage: 300 MG, UNK
  7. HYDROCODONE BITARTRATE [Concomitant]

REACTIONS (22)
  - ANXIETY [None]
  - CHEST PAIN [None]
  - CRYING [None]
  - DEPRESSED MOOD [None]
  - DEPRESSION [None]
  - DYSPNOEA [None]
  - EMOTIONAL DISTRESS [None]
  - FATIGUE [None]
  - FEAR [None]
  - FEELING ABNORMAL [None]
  - GENERAL PHYSICAL HEALTH DETERIORATION [None]
  - HOMICIDAL IDEATION [None]
  - INSOMNIA [None]
  - NAUSEA [None]
  - NIGHTMARE [None]
  - PANIC ATTACK [None]
  - RASH PRURITIC [None]
  - SEXUAL DYSFUNCTION [None]
  - SOMNOLENCE [None]
  - SUICIDAL IDEATION [None]
  - TOOTH DISORDER [None]
  - WEIGHT INCREASED [None]
